FAERS Safety Report 9998961 (Version 7)
Quarter: 2015Q2

REPORT INFORMATION
  Report Type: Report from Study
  Country: US (occurrence: US)
  Receive Date: 20140312
  Receipt Date: 20150403
  Transmission Date: 20150821
  Serious: Yes (Other)
  Sender: FDA-Public Use
  Company Number: US-ALEXION PHARMACEUTICALS INC.-A201400683

PATIENT

DRUGS (12)
  1. ACYCLOVIR                          /00587301/ [Concomitant]
     Active Substance: ACYCLOVIR
     Indication: ANTIBIOTIC PROPHYLAXIS
     Dosage: 1000 MG, QD
     Route: 065
     Dates: start: 20130520
  2. GABAPENTIN. [Concomitant]
     Active Substance: GABAPENTIN
     Indication: HEADACHE
     Dosage: 1200 MG, TID
     Route: 065
     Dates: start: 20120217
  3. MORPHINE                           /00036302/ [Concomitant]
     Active Substance: MORPHINE
     Indication: PAIN
     Dosage: 15 MG, TID
     Route: 065
     Dates: start: 20120601
  4. FOLIC ACID. [Concomitant]
     Active Substance: FOLIC ACID
     Indication: PRODUCT USED FOR UNKNOWN INDICATION
     Dosage: 1 MG, QD
     Route: 065
     Dates: start: 20120101, end: 20121101
  5. CELEXA [Concomitant]
     Active Substance: CITALOPRAM HYDROBROMIDE
     Indication: DEPRESSION
     Dosage: 20 MG 3 TABS , QD
     Route: 048
     Dates: start: 20130101
  6. PREDNISONE. [Concomitant]
     Active Substance: PREDNISONE
     Indication: STEROID THERAPY
     Dosage: UNK
     Route: 065
     Dates: start: 20120120, end: 20120601
  7. PENICILLIN                         /00000901/ [Concomitant]
     Active Substance: PENICILLIN
     Indication: ANTIBIOTIC PROPHYLAXIS
     Dosage: 1 DF, TID
     Route: 065
     Dates: start: 20130320
  8. SOLIRIS [Suspect]
     Active Substance: ECULIZUMAB
     Indication: HAEMOLYTIC URAEMIC SYNDROME
     Dosage: 1200 MG, Q2W
     Route: 042
     Dates: start: 20111202, end: 20111206
  9. TRAZODONE [Concomitant]
     Active Substance: TRAZODONE HYDROCHLORIDE
     Indication: ANXIETY
     Dosage: 50 MG, 1-2 TABLETS QD AT BEDTIME
     Route: 048
     Dates: start: 20120801
  10. ESTRADIOL. [Concomitant]
     Active Substance: ESTRADIOL
     Indication: PRODUCT USED FOR UNKNOWN INDICATION
     Dosage: 0.5, QD
     Route: 065
     Dates: start: 20130901
  11. FAMOTIDINE. [Concomitant]
     Active Substance: FAMOTIDINE
     Indication: GASTROOESOPHAGEAL REFLUX DISEASE
     Dosage: 40 MG, QD
     Route: 048
     Dates: start: 20120101, end: 20121101
  12. SOLIRIS [Suspect]
     Active Substance: ECULIZUMAB
     Dosage: UNK
     Route: 042
     Dates: end: 20131219

REACTIONS (21)
  - Fatigue [Unknown]
  - Memory impairment [Not Recovered/Not Resolved]
  - Post-traumatic stress disorder [Unknown]
  - Condition aggravated [Not Recovered/Not Resolved]
  - Disturbance in attention [Unknown]
  - Asthenia [Unknown]
  - Disseminated intravascular coagulation [Unknown]
  - Brain injury [Unknown]
  - Central venous catheter removal [Unknown]
  - Cognitive disorder [Unknown]
  - Pain in extremity [Unknown]
  - Asthenia [Unknown]
  - Obsessive-compulsive disorder [Unknown]
  - Arthralgia [Unknown]
  - Lichen planus [Unknown]
  - Tremor [Unknown]
  - Seizure like phenomena [Unknown]
  - Muscle spasms [Unknown]
  - Nausea [Unknown]
  - Dysphagia [Unknown]
  - Dizziness [Unknown]

NARRATIVE: CASE EVENT DATE: 2014
